FAERS Safety Report 7298751-7 (Version None)
Quarter: 2011Q1

REPORT INFORMATION
  Report Type: 
  Country: None (occurrence: None)
  Receive Date: 20110217
  Receipt Date: 20110211
  Transmission Date: 20110831
  Serious: Yes (Other)
  Sender: FDA-Public Use
  Company Number: GB-JNJFOC-20110203808

PATIENT
  Sex: Female

DRUGS (3)
  1. DAKTARIN ORAL GEL [Suspect]
     Route: 061
  2. DAKTARIN ORAL GEL [Suspect]
     Indication: ORAL CANDIDIASIS
     Route: 061
  3. DAKTARIN ORAL GEL [Suspect]
     Route: 061

REACTIONS (7)
  - DIARRHOEA [None]
  - ABDOMINAL PAIN UPPER [None]
  - HEADACHE [None]
  - PHARYNGEAL DISORDER [None]
  - PAIN [None]
  - VOMITING [None]
  - DRUG INEFFECTIVE [None]
